FAERS Safety Report 6575554-X (Version None)
Quarter: 2010Q1

REPORT INFORMATION
  Report Type: 
  Country: None (occurrence: None)
  Receive Date: 20100208
  Receipt Date: 20100208
  Transmission Date: 20100710
  Serious: No
  Sender: FDA-Public Use
  Company Number: None

PATIENT
  Age: 77 Year
  Sex: Male

DRUGS (2)
  1. MORPHINE [Suspect]
     Indication: PAIN
     Dosage: 2 MG PRN IV
     Route: 042
     Dates: start: 20091107, end: 20091110
  2. MORPHINE [Suspect]
     Dosage: 5 MG/2.5 ML PRN PO
     Route: 048
     Dates: start: 20091107, end: 20091110

REACTIONS (3)
  - FLUID OVERLOAD [None]
  - UNRESPONSIVE TO STIMULI [None]
  - URINE OUTPUT DECREASED [None]
